FAERS Safety Report 16095337 (Version 7)
Quarter: 2020Q3

REPORT INFORMATION
  Report Type: Other
  Country: CA (occurrence: CA)
  Receive Date: 20190320
  Receipt Date: 20200720
  Transmission Date: 20201102
  Serious: Yes (Other)
  Sender: FDA-Public Use
  Company Number: CA-BECTON DICKINSON-2019BDN00106

PATIENT
  Age: 27 Year
  Sex: Female

DRUGS (70)
  1. NIFEDIPINE. [Suspect]
     Active Substance: NIFEDIPINE
     Dosage: 20 MG
     Route: 048
  2. NIFEDIPINE. [Suspect]
     Active Substance: NIFEDIPINE
     Dosage: 60 MG, 1X/DAY
     Route: 023
  3. NIFEDIPINE. [Suspect]
     Active Substance: NIFEDIPINE
     Dosage: 720 MG, EVERY HOUR
  4. NIFEDIPINE. [Suspect]
     Active Substance: NIFEDIPINE
     Dosage: UNK
  5. SILDENAFIL. [Suspect]
     Active Substance: SILDENAFIL
     Dosage: 20 MG, 1 EVERY 6 HOUR(S) (^4 EVERY 1 DAYS^)
     Route: 048
  6. SILDENAFIL. [Suspect]
     Active Substance: SILDENAFIL
     Dosage: 20 MG, 1 EVERY 8 HOUR(S)
     Route: 048
  7. SILDENAFIL. [Suspect]
     Active Substance: SILDENAFIL
     Dosage: UNK
  8. APO?SILDENAFIL R [Suspect]
     Active Substance: SILDENAFIL
     Dosage: 20 MG, EVERY 8 HOURS
  9. METHYLDOPA. [Suspect]
     Active Substance: METHYLDOPA
     Indication: HYPERTENSION
     Route: 048
  10. MULTIVITAMINE(S) [Suspect]
     Active Substance: VITAMINS
     Indication: PROPHYLAXIS
  11. NIFEDIPINE. [Suspect]
     Active Substance: NIFEDIPINE
     Dosage: 60 MG, 2 EVERY 1 DAY(S)
  12. NIFEDIPINE. [Suspect]
     Active Substance: NIFEDIPINE
     Dosage: 120 MG, 1X/DAY
  13. NIFEDIPINE. [Suspect]
     Active Substance: NIFEDIPINE
     Dosage: 20 MG, EVERY 12 HOURS
  14. NIFEDIPINE. [Suspect]
     Active Substance: NIFEDIPINE
     Dosage: 20 MG, 1X/DAY
  15. SILDENAFIL. [Suspect]
     Active Substance: SILDENAFIL
     Dosage: 20 MG, 3 EVERY 1 DAY(S)
     Route: 048
  16. SILDENAFIL. [Suspect]
     Active Substance: SILDENAFIL
     Dosage: 20 MG, 2 EVERY 1 DAY(S)
  17. SILDENAFIL. [Suspect]
     Active Substance: SILDENAFIL
     Dosage: 60, 1X/DAY
  18. SILDENAFIL. [Suspect]
     Active Substance: SILDENAFIL
     Dosage: UNK, EVERY 6 HOURS
  19. METFORMIN [Suspect]
     Active Substance: METFORMIN HYDROCHLORIDE
     Indication: TYPE 2 DIABETES MELLITUS
  20. NIFEDIPINE. [Suspect]
     Active Substance: NIFEDIPINE
     Indication: HYPERTENSION
     Dosage: 20 MG, 2 EVERY 1 DAY(S)
  21. NIFEDIPINE. [Suspect]
     Active Substance: NIFEDIPINE
     Dosage: 60 MG, EVERY 12 HOURS
  22. SILDENAFIL. [Suspect]
     Active Substance: SILDENAFIL
     Dosage: 20 MG, 1 EVERY 6 HOUR(S)
     Route: 048
  23. SILDENAFIL. [Suspect]
     Active Substance: SILDENAFIL
     Dosage: 80 MG, 1X/DAY
     Route: 048
  24. APO?SILDENAFIL R [Suspect]
     Active Substance: SILDENAFIL
     Dosage: 20 MG, 2 EVERY 1 DAY
  25. NIFEDIPINE. [Suspect]
     Active Substance: NIFEDIPINE
     Dosage: 20 MG, 2 EVERY 1 DAY(S)
  26. SILDENAFIL. [Suspect]
     Active Substance: SILDENAFIL
     Indication: FOETAL GROWTH RESTRICTION
     Dosage: 20 MG, 1X/DAY
     Route: 048
  27. SILDENAFIL. [Suspect]
     Active Substance: SILDENAFIL
     Dosage: 20 MG, 6 EVERY 1 HOUR(S)
     Route: 048
  28. SILDENAFIL. [Suspect]
     Active Substance: SILDENAFIL
     Dosage: UNK, 1 EVERY 6 HOURS
  29. SILDENAFIL. [Suspect]
     Active Substance: SILDENAFIL
     Dosage: 240 MG, EVERY HOUR
  30. SILDENAFIL. [Suspect]
     Active Substance: SILDENAFIL
     Dosage: 20 MG, ^8 EVERY 1 HOUR^
  31. CHLORHEXIDINE [Suspect]
     Active Substance: CHLORHEXIDINE
     Indication: GINGIVAL HYPERTROPHY
  32. APO?SILDENAFIL [Suspect]
     Active Substance: SILDENAFIL
     Indication: FOETAL GROWTH RESTRICTION
     Dosage: 20 MG, 2X/DAY
  33. APO?SILDENAFIL R [Suspect]
     Active Substance: SILDENAFIL
     Dosage: UNK, EVERY 6 HOURS
  34. CHLORHEXIDINE GLUCONATE ORAL RINSE [Suspect]
     Active Substance: CHLORHEXIDINE GLUCONATE
     Indication: GINGIVAL HYPERTROPHY
  35. NIFEDIPINE. [Suspect]
     Active Substance: NIFEDIPINE
     Dosage: 20 MG, 2 EVERY 1 DAY
  36. NIFEDIPINE. [Suspect]
     Active Substance: NIFEDIPINE
     Dosage: 20 MG, 1X/DAY
     Route: 048
  37. SILDENAFIL. [Suspect]
     Active Substance: SILDENAFIL
     Dosage: 20 MG
     Route: 048
  38. SILDENAFIL. [Suspect]
     Active Substance: SILDENAFIL
     Dosage: 60 DOSAGE UNITS; 1X/DAY
  39. SILDENAFIL. [Suspect]
     Active Substance: SILDENAFIL
     Dosage: UNK, 4 EVERY 1 DAY
     Route: 048
  40. ACETYLSALICYLIC ACID (ASA) [Suspect]
     Active Substance: ASPIRIN
     Indication: PROPHYLAXIS
  41. ACETYLSALICYLIC ACID (ASA) [Suspect]
     Active Substance: ASPIRIN
     Indication: PRE-ECLAMPSIA
  42. APO?SILDENAFIL R [Suspect]
     Active Substance: SILDENAFIL
     Indication: FOETAL GROWTH RESTRICTION
     Dosage: 40 MG, EVERY DAY
  43. APO?SILDENAFIL R [Suspect]
     Active Substance: SILDENAFIL
     Dosage: 20 MG, 6 EVERY 1 DAY
  44. NIFEDIPINE. [Suspect]
     Active Substance: NIFEDIPINE
     Dosage: 20 MG, 1X/DAY
  45. NIFEDIPINE. [Suspect]
     Active Substance: NIFEDIPINE
     Dosage: 40 MG, 1X/DAY
  46. NIFEDIPINE. [Suspect]
     Active Substance: NIFEDIPINE
     Dosage: 120 MG, 1X/DAY
  47. NIFEDIPINE. [Suspect]
     Active Substance: NIFEDIPINE
     Dosage: 40 MG, 1X/DAY
  48. NIFEDIPINE. [Suspect]
     Active Substance: NIFEDIPINE
     Dosage: 20 MG
     Route: 048
  49. SILDENAFIL. [Suspect]
     Active Substance: SILDENAFIL
     Dosage: 20 MG, 3 EVERY 1 DAY(S)
  50. SILDENAFIL. [Suspect]
     Active Substance: SILDENAFIL
     Dosage: 160MG, EVERY HOUR
  51. SILDENAFIL. [Suspect]
     Active Substance: SILDENAFIL
     Dosage: 20 MG, 1 EVERY 12 HOUR(S)
  52. APO?SILDENAFIL [Suspect]
     Active Substance: SILDENAFIL
     Dosage: 20 MG, 3X/DAY
  53. APO?SILDENAFIL [Suspect]
     Active Substance: SILDENAFIL
     Dosage: 20 MG, 4X/DAY
  54. APO?SILDENAFIL R [Suspect]
     Active Substance: SILDENAFIL
     Dosage: 60 MG, EVERY DAY
  55. ERGOCALCIFEROL. [Suspect]
     Active Substance: ERGOCALCIFEROL
     Indication: PROPHYLAXIS
  56. INSULIN [Suspect]
     Active Substance: INSULIN NOS
     Indication: TYPE 2 DIABETES MELLITUS
     Route: 048
  57. NIFEDIPINE. [Suspect]
     Active Substance: NIFEDIPINE
     Dosage: 20 MG, 1X/DAY
     Route: 048
  58. NIFEDIPINE. [Suspect]
     Active Substance: NIFEDIPINE
     Dosage: 240 MG, EVERY HOUR
  59. NIFEDIPINE. [Suspect]
     Active Substance: NIFEDIPINE
     Dosage: 60 MG, 2 EVERY 1 DAY
  60. NIFEDIPINE. [Suspect]
     Active Substance: NIFEDIPINE
     Dosage: 120 MG, 2 EVERY 1 DAY
  61. SILDENAFIL. [Suspect]
     Active Substance: SILDENAFIL
     Dosage: 20 MG, 4 EVERY 1 DAY
     Route: 048
  62. APO?SILDENAFIL R [Suspect]
     Active Substance: SILDENAFIL
     Dosage: 20 MG, EVERY 12 HOURS
  63. APO?SILDENAFIL R [Suspect]
     Active Substance: SILDENAFIL
     Dosage: 20 MG, 4 EVERY 1 DAY
  64. ASPIRIN. [Suspect]
     Active Substance: ASPIRIN
  65. DEXPANTHENOL/ERGOCALCIFEROL/FOLIC ACID/NICOTINAMIDE/RIBOFLAVIN/THIAMIN [Suspect]
     Active Substance: VITAMINS
     Indication: PROPHYLAXIS
  66. DICLECTIN [Suspect]
     Active Substance: DOXYLAMINE SUCCINATE\PYRIDOXINE HYDROCHLORIDE
     Indication: PROPHYLAXIS
     Route: 048
  67. METHYLDOPA. [Suspect]
     Active Substance: METHYLDOPA
     Dosage: UNK
  68. NIFEDIPINE. [Suspect]
     Active Substance: NIFEDIPINE
     Dosage: UNK
  69. NIFEDIPINE. [Suspect]
     Active Substance: NIFEDIPINE
     Indication: HYPERTENSION
     Dosage: 20 MG, 3 EVERY 1 DAY(S)
     Route: 023
  70. SILDENAFIL. [Suspect]
     Active Substance: SILDENAFIL
     Dosage: 40 MG, 1X/DAY

REACTIONS (3)
  - Maternal exposure during pregnancy [Recovered/Resolved]
  - Premature delivery [Unknown]
  - Off label use [Unknown]
